FAERS Safety Report 7481698-0 (Version None)
Quarter: 2011Q2

REPORT INFORMATION
  Report Type: 
  Country: None (occurrence: None)
  Receive Date: 20110516
  Receipt Date: 20110511
  Transmission Date: 20111010
  Serious: Yes (Other)
  Sender: FDA-Public Use
  Company Number: US-ROCHE-776906

PATIENT
  Sex: Female

DRUGS (2)
  1. BONIVA [Suspect]
     Dosage: DISCONTINUED FOR 1 YEAR
     Route: 065
     Dates: end: 20090501
  2. BONIVA [Suspect]
     Route: 065
     Dates: start: 20100101

REACTIONS (1)
  - UPPER LIMB FRACTURE [None]
